FAERS Safety Report 16863610 (Version 1)
Quarter: 2019Q3

REPORT INFORMATION
  Report Type: Spontaneous
  Country: DK (occurrence: DK)
  Receive Date: 20190927
  Receipt Date: 20190927
  Transmission Date: 20191005
  Serious: Yes (Hospitalization, Other)
  Sender: FDA-Public Use
  Company Number: DK-GLAXOSMITHKLINE-DK2019GSK172279

PATIENT
  Age: 64 Year
  Sex: Male

DRUGS (10)
  1. CEFUROXIME. [Suspect]
     Active Substance: CEFUROXIME
     Indication: ANTIBIOTIC PROPHYLAXIS
     Dosage: UNK
  2. BASILIXIMAB [Suspect]
     Active Substance: BASILIXIMAB
     Dosage: ON DAY 4 AFTER RTX AS INDUCTION THERAPY
  3. MYCOPHENOLATE MOFETIL. [Suspect]
     Active Substance: MYCOPHENOLATE MOFETIL
     Indication: IMMUNOSUPPRESSION
     Dosage: 750 MG TWICE DAILY
  4. PREDNISOLONE. [Suspect]
     Active Substance: PREDNISOLONE
     Indication: IMMUNOSUPPRESSION
     Dosage: 20 MG ONCE DAILY
  5. MYCOPHENOLATE MOFETIL. [Suspect]
     Active Substance: MYCOPHENOLATE MOFETIL
     Dosage: 500 MG TWICE DAILY 51 DAYS AFTER RTX
  6. BASILIXIMAB [Suspect]
     Active Substance: BASILIXIMAB
     Indication: IMMUNOSUPPRESSION
     Dosage: 20 MG, JUST BEFORE RTX
  7. TRIMETHOPRIM + SULFAMETHOXAZOL [Suspect]
     Active Substance: SULFAMERAZINE SODIUM\TRIMETHOPRIM
     Indication: ANTIBIOTIC PROPHYLAXIS
     Dosage: UNK
  8. TACROLIMUS. [Suspect]
     Active Substance: TACROLIMUS
     Indication: IMMUNOSUPPRESSION
     Dosage: 0.1 MG/KG TWICE DAILY
  9. TACROLIMUS. [Suspect]
     Active Substance: TACROLIMUS
     Dosage: GRADUALLY REDUCED TO 1 MG TWICE DAILY
  10. MYCOPHENOLATE MOFETIL. [Suspect]
     Active Substance: MYCOPHENOLATE MOFETIL
     Dosage: 250 MG TWICE DAILY 81 DAYS AFTER RTX

REACTIONS (9)
  - Urinary tract infection [Recovered/Resolved]
  - Drug resistance [Unknown]
  - Chronic allograft nephropathy [Unknown]
  - Transplant dysfunction [Unknown]
  - Klebsiella infection [Recovered/Resolved]
  - Urosepsis [Recovered/Resolved]
  - Glomerulosclerosis [Unknown]
  - Clostridium test positive [Unknown]
  - Diarrhoea [Recovered/Resolved]
